FAERS Safety Report 5418954-3 (Version None)
Quarter: 2007Q3

REPORT INFORMATION
  Report Type: 
  Country: None (occurrence: None)
  Receive Date: 20070817
  Receipt Date: 20070807
  Transmission Date: 20080115
  Serious: Yes (Other)
  Sender: FDA-Public Use
  Company Number: FR-PFIZER INC-2007065785

PATIENT
  Sex: Female

DRUGS (5)
  1. ZOLOFT [Suspect]
     Indication: DEPRESSION
     Dates: start: 20061201, end: 20070601
  2. TRIMEBUTINE [Concomitant]
     Indication: GASTROINTESTINAL DISORDER
  3. PROPRANOLOL HYDROCHLORIDE [Concomitant]
     Indication: HYPERTENSION
  4. PHYSIOTENS [Concomitant]
     Indication: HYPERTENSION
  5. LEXOMIL [Concomitant]
     Indication: ANXIETY

REACTIONS (5)
  - DYSARTHRIA [None]
  - DYSKINESIA [None]
  - PAIN [None]
  - SALIVARY HYPERSECRETION [None]
  - THYROID NEOPLASM [None]
